FAERS Safety Report 14993298 (Version 1)
Quarter: 2018Q2

REPORT INFORMATION
  Report Type: Spontaneous
  Country: GB (occurrence: GB)
  Receive Date: 20180610
  Receipt Date: 20180610
  Transmission Date: 20180711
  Serious: Yes (Other)
  Sender: FDA-Public Use
  Company Number: PHHY2018GB016093

PATIENT
  Age: 21 Week
  Sex: Male

DRUGS (5)
  1. MYCOPHENOLATE MOFETIL. [Suspect]
     Active Substance: MYCOPHENOLATE MOFETIL
     Indication: HEPATITIS
  2. MYCOPHENOLATE MOFETIL. [Suspect]
     Active Substance: MYCOPHENOLATE MOFETIL
     Indication: AUTOIMMUNE HEPATITIS
     Dosage: 20 MG/KG/DOSE, UNK
     Route: 065
  3. RITUXIMAB. [Suspect]
     Active Substance: RITUXIMAB
     Indication: HEPATITIS
  4. RITUXIMAB. [Suspect]
     Active Substance: RITUXIMAB
     Indication: AUTOIMMUNE HEPATITIS
     Dosage: FOUR COURSES (WITH LAST DOSE GIVEN AT 21 WEEKS OF AGE)
     Route: 065
  5. INMUNOGLOBULIN G [Concomitant]
     Active Substance: HUMAN IMMUNOGLOBULIN G
     Indication: COOMBS POSITIVE HAEMOLYTIC ANAEMIA
     Dosage: ONE DOSE
     Route: 042

REACTIONS (3)
  - Product use in unapproved indication [Unknown]
  - Encephalopathy [Unknown]
  - Therapy non-responder [Unknown]
